FAERS Safety Report 4299168-X (Version None)
Quarter: 2004Q1

REPORT INFORMATION
  Report Type: 
  Country: None (occurrence: None)
  Receive Date: 20040217
  Receipt Date: 20031216
  Transmission Date: 20041129
  Serious: Yes (Hospitalization, Other)
  Sender: FDA-Public Use
  Company Number: USA-2003-0006882

PATIENT
  Age: 40 Year
  Sex: Male
  Weight: 79.4 kg

DRUGS (15)
  1. OXYCONTIN [Suspect]
     Indication: PAIN
     Dosage: SEE IMAGE, ORAL
     Route: 048
     Dates: start: 20000101, end: 20020318
  2. PERCOCET [Suspect]
     Indication: PAIN
     Dosage: 10 MG, Q4-6H PRN, ORAL
     Route: 048
  3. WELLBUTRIN SR [Concomitant]
  4. ZOLOFT [Concomitant]
  5. TRIAVIL (AMITRIPTYLINE HYDROCHLORIDE, PERPHENAZINE) [Concomitant]
  6. SENOKOT-S (DOCUSATE SODIUM, SENNOSIDE A+B) TABLET [Concomitant]
  7. SONATA [Concomitant]
  8. CIPRO [Concomitant]
  9. VALIUM [Concomitant]
  10. XANAX [Concomitant]
  11. LORCET (ALPRAZOLAM) [Concomitant]
  12. VICODIN [Concomitant]
  13. OXYCODONE HCL [Concomitant]
  14. ZANTAC [Concomitant]
  15. ALBUTEROL [Concomitant]

REACTIONS (29)
  - AMNESIA [None]
  - ANXIETY [None]
  - BURNING SENSATION [None]
  - CHEST PAIN [None]
  - CONSTIPATION [None]
  - DEPRESSION [None]
  - DRUG ABUSER [None]
  - DRUG DEPENDENCE [None]
  - DRUG TOLERANCE [None]
  - DRUG WITHDRAWAL SYNDROME [None]
  - DYSPEPSIA [None]
  - ERECTILE DYSFUNCTION [None]
  - EXCORIATION [None]
  - HAND FRACTURE [None]
  - HEADACHE [None]
  - HYPERHIDROSIS [None]
  - INSOMNIA [None]
  - IRRITABILITY [None]
  - LIBIDO DECREASED [None]
  - LIPOMA [None]
  - MUSCLE TIGHTNESS [None]
  - NAUSEA [None]
  - NECK PAIN [None]
  - NIGHTMARE [None]
  - OEDEMA PERIPHERAL [None]
  - PAIN EXACERBATED [None]
  - PALPITATIONS [None]
  - SLEEP DISORDER [None]
  - URINARY RETENTION [None]
